FAERS Safety Report 16234898 (Version 1)
Quarter: 2019Q2

REPORT INFORMATION
  Report Type: Report from Study
  Country: IT (occurrence: IT)
  Receive Date: 20190424
  Receipt Date: 20190424
  Transmission Date: 20190711
  Serious: Yes (Other)
  Sender: FDA-Public Use
  Company Number: IT-PFIZER INC-2019166155

PATIENT
  Age: 9 Year
  Sex: Male
  Weight: 37 kg

DRUGS (14)
  1. MYCOSTATIN [Concomitant]
     Active Substance: NYSTATIN
     Dosage: 15 ML, UNK
     Route: 048
     Dates: start: 20180720
  2. URBASON [METHYLPREDNISOLONE] [Concomitant]
     Active Substance: METHYLPREDNISOLONE
     Dosage: 10 MG, UNK
     Route: 037
     Dates: start: 20180723, end: 20181015
  3. BACTRIM [Concomitant]
     Active Substance: SULFAMETHOXAZOLE\TRIMETHOPRIM
     Route: 048
     Dates: start: 20180720
  4. DELTACORTENE [Concomitant]
     Active Substance: PREDNISONE
     Dosage: 70 MG, UNK
     Route: 048
     Dates: start: 20180727
  5. ZOFRAN [Concomitant]
     Active Substance: ONDANSETRON HYDROCHLORIDE
     Route: 042
     Dates: start: 20180723, end: 20180813
  6. VINCRISTINE SULFATE. [Suspect]
     Active Substance: VINCRISTINE SULFATE
     Indication: ACUTE LYMPHOCYTIC LEUKAEMIA
     Dosage: 1.77 MG, CYCLIC
     Route: 042
     Dates: start: 20180727, end: 20180830
  7. URBASON [METHYLPREDNISOLONE] [Concomitant]
     Active Substance: METHYLPREDNISOLONE
     Indication: PREMEDICATION
     Dosage: 205 MG, UNK
     Route: 042
  8. PAXABEL [Concomitant]
     Route: 048
     Dates: start: 20180803, end: 20180810
  9. ZYLORIC [Concomitant]
     Active Substance: ALLOPURINOL
     Route: 048
     Dates: start: 20180720, end: 20180728
  10. ANTRA [OMEPRAZOLE] [Concomitant]
     Active Substance: OMEPRAZOLE
     Route: 042
     Dates: start: 20180721
  11. DAUNOBLASTINA [Suspect]
     Active Substance: DAUNORUBICIN
     Indication: ACUTE LYMPHOCYTIC LEUKAEMIA
     Dosage: 35.4 MG, CYCLIC
     Route: 042
     Dates: start: 20180727, end: 20180830
  12. METHOTREXATE SODIUM. [Suspect]
     Active Substance: METHOTREXATE SODIUM
     Indication: ACUTE LYMPHOCYTIC LEUKAEMIA
     Dosage: 12 MG, CYCLIC
     Route: 037
     Dates: start: 20180723, end: 20181015
  13. PARACETAMOL [Concomitant]
     Active Substance: ACETAMINOPHEN
     Route: 042
  14. PEGASPARGASE [Suspect]
     Active Substance: PEGASPARGASE
     Indication: ACUTE LYMPHOCYTIC LEUKAEMIA
     Dosage: 2950 KIU, CYCLIC
     Route: 042
     Dates: start: 20180802, end: 20180827

REACTIONS (2)
  - Hepatotoxicity [Recovered/Resolved]
  - Blood pressure increased [Recovered/Resolved]

NARRATIVE: CASE EVENT DATE: 20180803
